FAERS Safety Report 14923869 (Version 1)
Quarter: 2018Q2

REPORT INFORMATION
  Report Type: Spontaneous
  Country: IE (occurrence: IE)
  Receive Date: 20180522
  Receipt Date: 20180522
  Transmission Date: 20180711
  Serious: Yes (Disabling)
  Sender: FDA-Public Use
  Company Number: IE-ABBVIE-18K-229-2265151-00

PATIENT
  Age: 54 Year
  Sex: Female

DRUGS (7)
  1. METHOTREXATE. [Concomitant]
     Active Substance: METHOTREXATE
  2. DICLOFENAC [Concomitant]
     Active Substance: DICLOFENAC
     Indication: RHEUMATOID ARTHRITIS
     Route: 048
     Dates: start: 2011
  3. SOLPADEINE [Concomitant]
     Indication: RHEUMATOID ARTHRITIS
     Route: 048
     Dates: start: 2011
  4. METHOTREXATE. [Concomitant]
     Active Substance: METHOTREXATE
     Indication: RHEUMATOID ARTHRITIS
     Route: 048
     Dates: start: 2011
  5. SIMVASTATIN. [Concomitant]
     Active Substance: SIMVASTATIN
     Indication: PRODUCT USED FOR UNKNOWN INDICATION
     Route: 048
     Dates: start: 2011
  6. HUMIRA [Suspect]
     Active Substance: ADALIMUMAB
     Indication: RHEUMATOID ARTHRITIS
     Route: 058
     Dates: start: 201707, end: 20171127
  7. CLONFOLIC [Concomitant]
     Indication: RHEUMATOID ARTHRITIS
     Route: 048
     Dates: start: 2011

REACTIONS (14)
  - Perineal pain [Unknown]
  - Urethral pain [Unknown]
  - Nocturia [Unknown]
  - Pyuria [Unknown]
  - Weight decreased [Unknown]
  - Granuloma [Unknown]
  - Dysuria [Unknown]
  - Tuberculosis bladder [Not Recovered/Not Resolved]
  - Cystitis noninfective [Not Recovered/Not Resolved]
  - Inflammation [Unknown]
  - Pollakiuria [Unknown]
  - Cystitis noninfective [Unknown]
  - Micturition urgency [Unknown]
  - Urinary tract infection [Not Recovered/Not Resolved]

NARRATIVE: CASE EVENT DATE: 201708
